FAERS Safety Report 7297857-6 (Version None)
Quarter: 2011Q1

REPORT INFORMATION
  Report Type: 
  Country: None (occurrence: None)
  Receive Date: 20110217
  Receipt Date: 20101105
  Transmission Date: 20110831
  Serious: No
  Sender: FDA-Public Use
  Company Number: US-KINGPHARMUSA00001-K201001361

PATIENT
  Sex: Male

DRUGS (8)
  1. FLECTOR [Suspect]
     Indication: BACK PAIN
     Dosage: 1 PATCH, SINGLE
     Route: 061
     Dates: start: 20101104, end: 20101105
  2. COUMADIN [Concomitant]
  3. PLAVIX [Concomitant]
  4. FLECTOR [Suspect]
     Indication: SPINAL COLUMN STENOSIS
  5. CARDIAC THERAPY [Concomitant]
  6. LIPID MODIFYING AGENTS [Concomitant]
     Indication: BLOOD CHOLESTEROL
  7. CATAPRES [Concomitant]
  8. HYDRALAZINE [Concomitant]

REACTIONS (1)
  - APPLICATION SITE BLEEDING [None]
